FAERS Safety Report 15227478 (Version 1)
Quarter: 2018Q3

REPORT INFORMATION
  Report Type: Spontaneous
  Country: US (occurrence: US)
  Receive Date: 20180801
  Receipt Date: 20180801
  Transmission Date: 20181010
  Serious: Yes (Hospitalization)
  Sender: FDA-Public Use
  Company Number: US-BAYER-2018-141293

PATIENT
  Age: 78 Year
  Sex: Female
  Weight: 109 kg

DRUGS (2)
  1. BAYER ASPIRIN [Suspect]
     Active Substance: ASPIRIN
     Indication: CHEST PAIN
     Dosage: 1 DF, ONCE
     Route: 048
     Dates: start: 20180723
  2. BAYER ASPIRIN [Suspect]
     Active Substance: ASPIRIN
     Indication: ISCHAEMIC HEART DISEASE PROPHYLAXIS
     Dosage: 1 DF, ONCE
     Route: 048
     Dates: start: 20180724

REACTIONS (3)
  - Expired product administered [Unknown]
  - Drug effect incomplete [None]
  - Product use in unapproved indication [Unknown]

NARRATIVE: CASE EVENT DATE: 20180723
